FAERS Safety Report 4665062-5 (Version None)
Quarter: 2005Q2

REPORT INFORMATION
  Report Type: 
  Country: None (occurrence: None)
  Receive Date: 20050517
  Receipt Date: 20050429
  Transmission Date: 20051028
  Serious: Yes (Other)
  Sender: FDA-Public Use
  Company Number: 2005PL000018

PATIENT
  Age: 36 Year
  Sex: Male

DRUGS (2)
  1. AZATHIOPRINE [Suspect]
     Indication: VOGT-KOYANAGI-HARADA SYNDROME
     Dosage: 50 MG;QD
  2. PREDNISOLONE [Concomitant]

REACTIONS (8)
  - ASTHENIA [None]
  - B-CELL UNCLASSIFIABLE LYMPHOMA HIGH GRADE [None]
  - DIFFUSE LARGE B-CELL LYMPHOMA [None]
  - HYPOAESTHESIA [None]
  - LYMPHOCYTIC INFILTRATION [None]
  - NUCLEAR MAGNETIC RESONANCE IMAGING ABNORMAL [None]
  - SPINAL CORD COMPRESSION [None]
  - STEM CELL TRANSPLANT [None]
